FAERS Safety Report 9891069 (Version 1)
Quarter: 2014Q1

REPORT INFORMATION
  Report Type: Spontaneous
  Country: US (occurrence: None)
  Receive Date: 20140211
  Receipt Date: 20140211
  Transmission Date: 20141002
  Serious: Yes (Disabling)
  Sender: FDA-Public Use
  Company Number: None

PATIENT
  Age: 59 Year
  Sex: Female
  Weight: 58.06 kg

DRUGS (1)
  1. TECFIDERA [Suspect]
     Dates: start: 20130813, end: 20140207

REACTIONS (2)
  - Gastritis [None]
  - Gastrooesophageal reflux disease [None]
